FAERS Safety Report 4536771-3 (Version None)
Quarter: 2004Q4

REPORT INFORMATION
  Report Type: 
  Country: None (occurrence: None)
  Receive Date: 20041223
  Receipt Date: 20041216
  Transmission Date: 20050328
  Serious: Yes (Death)
  Sender: FDA-Public Use
  Company Number: CA-ROCHE-389547

PATIENT
  Age: 37 Year
  Sex: Female

DRUGS (2)
  1. XENICAL [Suspect]
     Indication: OBESITY
     Route: 048
     Dates: start: 20030216, end: 20030222
  2. XENICAL [Suspect]
     Route: 048
     Dates: end: 20041101

REACTIONS (2)
  - GASTROINTESTINAL DISORDER [None]
  - STARVATION [None]
